FAERS Safety Report 16008034 (Version 1)
Quarter: 2019Q1

REPORT INFORMATION
  Report Type: Spontaneous
  Country: FR (occurrence: FR)
  Receive Date: 20190226
  Receipt Date: 20190226
  Transmission Date: 20190418
  Serious: Yes (Other)
  Sender: FDA-Public Use
  Company Number: FR-ASTRAZENECA-2019SE28505

PATIENT
  Age: 76 Year
  Sex: Female
  Weight: 58 kg

DRUGS (3)
  1. SODIUM BICARBONATE. [Suspect]
     Active Substance: SODIUM BICARBONATE
     Dosage: 1.4 % (250ML) 4-6 MOUTH BATHS PER DAY
     Route: 048
     Dates: start: 20190121
  2. IBRANCE [Suspect]
     Active Substance: PALBOCICLIB
     Dosage: 125 MG, FROM DAY 1 TO DAY21
     Route: 048
     Dates: start: 20190121
  3. FASLODEX [Suspect]
     Active Substance: FULVESTRANT
     Dosage: 500 MG, AT DAY 1, 15, 28
     Route: 030
     Dates: start: 20190121

REACTIONS (5)
  - Palmar-plantar erythrodysaesthesia syndrome [Unknown]
  - Thrombocytopenia [Unknown]
  - Cough [Unknown]
  - Prehypertension [Unknown]
  - Neutropenia [Unknown]

NARRATIVE: CASE EVENT DATE: 20190204
